FAERS Safety Report 20478445 (Version 8)
Quarter: 2023Q2

REPORT INFORMATION
  Report Type: Spontaneous
  Country: US (occurrence: US)
  Receive Date: 20220216
  Receipt Date: 20230512
  Transmission Date: 20230721
  Serious: No
  Sender: FDA-Public Use
  Company Number: US-BIOGEN-2022BI01091160

PATIENT
  Age: 33 Year
  Sex: Male

DRUGS (6)
  1. VUMERITY [Suspect]
     Active Substance: DIROXIMEL FUMARATE
     Indication: Multiple sclerosis
     Route: 050
     Dates: start: 20220126, end: 20220201
  2. VUMERITY [Suspect]
     Active Substance: DIROXIMEL FUMARATE
     Route: 050
     Dates: start: 20220124
  3. VUMERITY [Suspect]
     Active Substance: DIROXIMEL FUMARATE
     Route: 050
     Dates: start: 202201
  4. VUMERITY [Suspect]
     Active Substance: DIROXIMEL FUMARATE
     Route: 050
     Dates: start: 20220125
  5. VUMERITY [Suspect]
     Active Substance: DIROXIMEL FUMARATE
     Route: 050
     Dates: start: 20220202
  6. VUMERITY [Suspect]
     Active Substance: DIROXIMEL FUMARATE
     Route: 050
     Dates: start: 20220214, end: 20230331

REACTIONS (10)
  - Memory impairment [Unknown]
  - Anxiety [Unknown]
  - Ankle fracture [Unknown]
  - Gastric disorder [Unknown]
  - White blood cell count decreased [Unknown]
  - Blood test abnormal [Recovered/Resolved]
  - Fall [Recovered/Resolved]
  - Diarrhoea [Unknown]
  - Lymphocyte count decreased [Unknown]
  - Flushing [Recovered/Resolved]

NARRATIVE: CASE EVENT DATE: 20220101
